FAERS Safety Report 6537833-1 (Version None)
Quarter: 2010Q1

REPORT INFORMATION
  Report Type: 
  Country: None (occurrence: None)
  Receive Date: 20100114
  Receipt Date: 20100106
  Transmission Date: 20100710
  Serious: Yes (Hospitalization, Other)
  Sender: FDA-Public Use
  Company Number: US-ASTRAZENECA-2010SE00457

PATIENT
  Age: 72 Year
  Sex: Female
  Weight: 69.9 kg

DRUGS (5)
  1. CRESTOR [Suspect]
     Indication: BLOOD CHOLESTEROL INCREASED
     Route: 048
     Dates: start: 20091101
  2. CRESTOR [Suspect]
     Route: 048
     Dates: start: 20091101
  3. SYNTHROID [Concomitant]
  4. VITAMINS [Concomitant]
  5. FISH OIL [Concomitant]

REACTIONS (3)
  - CATARACT OPERATION [None]
  - FATIGUE [None]
  - THYROID FUNCTION TEST ABNORMAL [None]
